FAERS Safety Report 24248845 (Version 1)
Quarter: 2024Q3

REPORT INFORMATION
  Report Type: Spontaneous
  Country: US (occurrence: US)
  Receive Date: 20240826
  Receipt Date: 20240826
  Transmission Date: 20241016
  Serious: No
  Sender: BRAINTREE
  Company Number: US-BRAINTREE LABORATORIES, INC.-2023BTE00770

PATIENT
  Age: 41 Year
  Sex: Male

DRUGS (8)
  1. GOLYTELY [Suspect]
     Active Substance: POLYETHYLENE GLYCOL 3350\POTASSIUM CHLORIDE\SODIUM BICARBONATE\SODIUM CHLORIDE\SODIUM SULFATE
     Indication: Colonoscopy
     Dosage: 9.5 L, 1X
     Route: 048
     Dates: start: 20230702, end: 20230702
  2. LINZESS [Concomitant]
     Active Substance: LINACLOTIDE
  3. MIRALAX [Concomitant]
     Active Substance: POLYETHYLENE GLYCOL 3350
  4. DULCOLAX (BISACODYL) [Concomitant]
     Active Substance: BISACODYL
  5. SENNA LEAF [Concomitant]
     Active Substance: SENNA LEAF
  6. FISH OIL [Concomitant]
     Active Substance: FISH OIL
  7. RISPERIDONE [Concomitant]
     Active Substance: RISPERIDONE
     Dosage: 3 MG, 1X/DAY
  8. NORVASC [Concomitant]
     Active Substance: AMLODIPINE BESYLATE
     Dosage: 5 MG, 1X/DAY

REACTIONS (2)
  - Drug ineffective [Recovered/Resolved]
  - Wrong technique in product usage process [Recovered/Resolved]

NARRATIVE: CASE EVENT DATE: 20230702
